FAERS Safety Report 18166253 (Version 1)
Quarter: 2020Q3

REPORT INFORMATION
  Report Type: Spontaneous
  Country: BR (occurrence: BR)
  Receive Date: 20200819
  Receipt Date: 20200819
  Transmission Date: 20201103
  Serious: Yes (Hospitalization)
  Sender: FDA-Public Use
  Company Number: BR-TEVA-2020-BR-1813441

PATIENT
  Age: 72 Year
  Sex: Female
  Weight: 90 kg

DRUGS (18)
  1. CORUS 50MG [Concomitant]
  2. ELIQUIS [Concomitant]
     Active Substance: APIXABAN
  3. CHLORTALIDONE [Concomitant]
     Active Substance: CHLORTHALIDONE
  4. SYNC LEVOTHYROXINE SODIUM [Concomitant]
  5. LUFTA GASTRO PRO [Concomitant]
  6. ESOMEPRAZOLE. [Concomitant]
     Active Substance: ESOMEPRAZOLE MAGNESIUM
  7. SYNTROID 75MCG [Concomitant]
  8. LYRICA [Concomitant]
     Active Substance: PREGABALIN
  9. DRAMIN B6 [Concomitant]
     Active Substance: DIMENHYDRINATE\PYRIDOXINE HYDROCHLORIDE
  10. MANIVASC [Concomitant]
     Active Substance: MANIDIPINE HYDROCHLORIDE
  11. CRESTOR [Concomitant]
     Active Substance: ROSUVASTATIN CALCIUM
  12. TAMARINE [Concomitant]
     Active Substance: HERBALS
  13. LABIRIN [Concomitant]
     Active Substance: BETAHISTINE
  14. MOTILIUM [Concomitant]
     Active Substance: DOMPERIDONE
  15. TEVAOXALI [Suspect]
     Active Substance: OXALIPLATIN
     Dosage: 143.8591MG + 5.8MG + 0.6MG; MODIFIED FOLFOX 6 PROTOCOL
     Route: 042
     Dates: start: 20200729
  16. DIPYRONE 1G [Concomitant]
  17. CODEINE 30MG [Concomitant]
  18. TOLREST 50MG [Concomitant]

REACTIONS (7)
  - Nausea [Unknown]
  - Hypertension [Unknown]
  - Abdominal pain [Unknown]
  - Oxygen saturation decreased [Unknown]
  - Vomiting [Unknown]
  - Anxiety [Unknown]
  - Back pain [Unknown]

NARRATIVE: CASE EVENT DATE: 20200729
